FAERS Safety Report 6881481-0 (Version None)
Quarter: 2010Q3

REPORT INFORMATION
  Report Type: 
  Country: None (occurrence: None)
  Receive Date: 20100729
  Receipt Date: 20100715
  Transmission Date: 20110219
  Serious: Yes (Other)
  Sender: FDA-Public Use
  Company Number: CN-PAR PHARMACEUTICAL, INC-2010SCPR001936

PATIENT
  Sex: Female

DRUGS (2)
  1. CAPOTEN [Suspect]
     Indication: HYPERTENSION
     Dosage: UNK
     Route: 065
     Dates: end: 20100701
  2. MONOPRIL [Suspect]
     Indication: HYPERTENSION
     Dosage: 10 MG,1/1 DAY
     Route: 048
     Dates: start: 20100701

REACTIONS (2)
  - FACE OEDEMA [None]
  - OEDEMA PERIPHERAL [None]
